FAERS Safety Report 9121537 (Version 3)
Quarter: 2013Q2

REPORT INFORMATION
  Report Type: Spontaneous
  Country: US (occurrence: US)
  Receive Date: 20130227
  Receipt Date: 20130509
  Transmission Date: 20140414
  Serious: Yes (Hospitalization)
  Sender: FDA-Public Use
  Company Number: US-009507513-1302USA010293

PATIENT
  Sex: Male
  Weight: 90.7 kg

DRUGS (3)
  1. REMERON [Suspect]
     Indication: DEPRESSION
     Dosage: 15 MG, QD
     Route: 048
     Dates: start: 201111, end: 201202
  2. REMERON [Suspect]
     Indication: ANXIETY
     Dosage: 30 MG, QD
     Route: 048
     Dates: start: 201202, end: 2012
  3. REMERON [Suspect]
     Dosage: HE SWITCHED BETWEEN BOTH DOSES ON AN AS NEEDED BASIS
     Route: 048
     Dates: start: 201208, end: 201301

REACTIONS (6)
  - Depression [Not Recovered/Not Resolved]
  - Hunger [Not Recovered/Not Resolved]
  - Pain [Not Recovered/Not Resolved]
  - Back pain [Not Recovered/Not Resolved]
  - Somnolence [Not Recovered/Not Resolved]
  - Malaise [Unknown]
